FAERS Safety Report 24721395 (Version 1)
Quarter: 2024Q4

REPORT INFORMATION
  Report Type: Spontaneous
  Country: PL (occurrence: PL)
  Receive Date: 20241211
  Receipt Date: 20241211
  Transmission Date: 20250115
  Serious: Yes (Other)
  Sender: BAYER HEALTHCARE PHARMACEUTICALS INC.
  Company Number: PL-BAYER-2024A171163

PATIENT
  Age: 34 Year
  Sex: Male

DRUGS (4)
  1. BETAFERON [Suspect]
     Active Substance: INTERFERON BETA-1B
     Indication: Multiple sclerosis
     Dosage: UNK
     Route: 065
     Dates: end: 2016
  2. DIMETHYL FUMARATE [Suspect]
     Active Substance: DIMETHYL FUMARATE
     Indication: Product used for unknown indication
     Route: 065
  3. KESIMPTA [Concomitant]
     Active Substance: OFATUMUMAB
     Indication: Multiple sclerosis
     Dosage: UNK
     Dates: start: 202310
  4. OZANIMOD HYDROCHLORIDE [Concomitant]

REACTIONS (4)
  - Multiple sclerosis [None]
  - Influenza like illness [None]
  - Intentional dose omission [None]
  - Treatment failure [None]

NARRATIVE: CASE EVENT DATE: 20160101
